FAERS Safety Report 21634632 (Version 1)
Quarter: 2022Q4

REPORT INFORMATION
  Report Type: Spontaneous
  Country: US (occurrence: US)
  Receive Date: 20221123
  Receipt Date: 20221123
  Transmission Date: 20230113
  Serious: No
  Sender: FDA-Public Use
  Company Number: US-ALMIRALL, LLC-2022AQU000154

PATIENT
  Sex: Female

DRUGS (1)
  1. SEYSARA [Suspect]
     Active Substance: SARECYCLINE HYDROCHLORIDE
     Indication: Acne
     Dosage: 100 MG, QD
     Route: 048

REACTIONS (2)
  - Dry mouth [Recovered/Resolved]
  - Dysgeusia [Recovered/Resolved]
